FAERS Safety Report 4556987-X (Version None)
Quarter: 2005Q1

REPORT INFORMATION
  Report Type: 
  Country: None (occurrence: None)
  Receive Date: 20050118
  Receipt Date: 20050114
  Transmission Date: 20050727
  Serious: Yes (Death, Hospitalization)
  Sender: FDA-Public Use
  Company Number: E044-316-3673

PATIENT
  Age: 83 Year
  Sex: Female
  Weight: 51 kg

DRUGS (11)
  1. DONEPEZIL HCL [Suspect]
     Indication: DEMENTIA
     Dosage: 10 MG, 1 IN 1 D, ORAL
     Route: 048
     Dates: start: 20040708, end: 20050105
  2. AUGMENTIN '125' [Concomitant]
  3. DUOVENT               (DUOVENT) [Concomitant]
  4. POLAROMINE                    (POLARONIL) [Concomitant]
  5. SPIPRALEXA [Concomitant]
  6. MICROLAX                (MICROLAX) [Concomitant]
  7. TOPCAL D3 [Concomitant]
  8. STRUMAZOL            (THIAMAZOLE) [Concomitant]
  9. FOSAMAX [Concomitant]
  10. FUROSEMIDE                 (FUROSEMIDE) [Concomitant]
  11. SPIRONOLACTONE [Concomitant]

REACTIONS (2)
  - PNEUMONIA [None]
  - RESPIRATORY DISTRESS [None]
